FAERS Safety Report 22344698 (Version 1)
Quarter: 2023Q2

REPORT INFORMATION
  Report Type: Spontaneous
  Country: US (occurrence: None)
  Receive Date: 20230519
  Receipt Date: 20230519
  Transmission Date: 20230721
  Serious: No
  Sender: FDA-Public Use
  Company Number: None

PATIENT
  Age: 52 Year
  Sex: Female
  Weight: 65.25 kg

DRUGS (1)
  1. BIMATOPROST [Suspect]
     Active Substance: BIMATOPROST
     Dates: start: 20230401, end: 20230515

REACTIONS (2)
  - Therapeutic product ineffective [None]
  - Recalled product [None]

NARRATIVE: CASE EVENT DATE: 20230515
